FAERS Safety Report 9552087 (Version 1)
Quarter: 2013Q3

REPORT INFORMATION
  Report Type: Spontaneous
  Country: US (occurrence: US)
  Receive Date: 20130925
  Receipt Date: 20130925
  Transmission Date: 20140515
  Serious: Yes (Other)
  Sender: FDA-Public Use
  Company Number: PHEH2013US019980

PATIENT
  Sex: Female

DRUGS (1)
  1. ARCAPTA [Suspect]
     Dosage: UNK UKN, UNK

REACTIONS (1)
  - Deafness [Unknown]
